FAERS Safety Report 14188008 (Version 1)
Quarter: 2017Q4

REPORT INFORMATION
  Report Type: Spontaneous
  Country: US (occurrence: None)
  Receive Date: 20171113
  Receipt Date: 20171113
  Transmission Date: 20180321
  Serious: Yes (Hospitalization)
  Sender: FDA-Public Use
  Company Number: None

PATIENT
  Age: 70 Year
  Sex: Female

DRUGS (13)
  1. LEVOTHYROXINE. [Concomitant]
     Active Substance: LEVOTHYROXINE
  2. METOPROLOL/HCTZ [Concomitant]
     Active Substance: HYDROCHLOROTHIAZIDE\METOPROLOL
  3. PRAVASTATIN. [Concomitant]
     Active Substance: PRAVASTATIN
  4. MYCOPHENOLIC [Suspect]
     Active Substance: MYCOPHENOLIC ACID
     Indication: RENAL TRANSPLANT
     Route: 048
     Dates: start: 20170914
  5. TACROLIMUS 1MG [Suspect]
     Active Substance: TACROLIMUS
     Indication: RENAL TRANSPLANT
     Route: 048
     Dates: start: 20170914
  6. ASPIRIN. [Concomitant]
     Active Substance: ASPIRIN
  7. MULTIVIT [Concomitant]
     Active Substance: VITAMINS
  8. ALLOPURINOL. [Concomitant]
     Active Substance: ALLOPURINOL
  9. CALCIUM/D3 [Concomitant]
     Active Substance: CALCIUM\CHOLECALCIFEROL
  10. TYLENOL [Concomitant]
     Active Substance: ACETAMINOPHEN
  11. FUROSIMIDE [Concomitant]
     Active Substance: FUROSEMIDE
  12. OMEPRAZOLE. [Concomitant]
     Active Substance: OMEPRAZOLE
  13. LISINOPRIL. [Concomitant]
     Active Substance: LISINOPRIL

REACTIONS (4)
  - Heart rate irregular [None]
  - Pain in extremity [None]
  - Hypertension [None]
  - Nausea [None]
